FAERS Safety Report 4866410-3 (Version None)
Quarter: 2005Q4

REPORT INFORMATION
  Report Type: 
  Country: None (occurrence: None)
  Receive Date: 20051227
  Receipt Date: 20050926
  Transmission Date: 20060501
  Serious: Yes (Hospitalization)
  Sender: FDA-Public Use
  Company Number: US-MERCK-0509USA04053

PATIENT
  Age: 55 Year
  Sex: Male
  Weight: 112 kg

DRUGS (7)
  1. VIOXX [Suspect]
     Indication: ARTHRITIS
     Route: 048
     Dates: start: 20010711, end: 20010902
  2. VIOXX [Suspect]
     Indication: PAIN
     Route: 048
     Dates: start: 20010711, end: 20010902
  3. ADVIL [Concomitant]
     Route: 065
  4. ANTIVERT [Concomitant]
     Route: 065
  5. DYAZIDE [Concomitant]
     Route: 065
  6. PRAVACHOL [Concomitant]
     Route: 065
  7. TYLENOL [Concomitant]
     Route: 065

REACTIONS (6)
  - ACUTE MYOCARDIAL INFARCTION [None]
  - ARTERIOSCLEROSIS CORONARY ARTERY [None]
  - EAR INJURY [None]
  - HYPERCHOLESTEROLAEMIA [None]
  - LACERATION [None]
  - VENTRICULAR HYPERTROPHY [None]
